FAERS Safety Report 25444362 (Version 1)
Quarter: 2025Q2

REPORT INFORMATION
  Report Type: Report from Study
  Country: GB (occurrence: GB)
  Receive Date: 20250617
  Receipt Date: 20250617
  Transmission Date: 20250717
  Serious: Yes (Hospitalization, Other)
  Sender: ABBVIE
  Company Number: GB-ABBVIE-6321537

PATIENT
  Sex: Male

DRUGS (1)
  1. SKYRIZI [Suspect]
     Active Substance: RISANKIZUMAB-RZAA
     Indication: Psoriasis
     Dosage: INJECT ONE PRE-FILLED SYRINGE EVERY TWELVE WEEK.
     Route: 058

REACTIONS (3)
  - Hip fracture [Unknown]
  - Fall [Unknown]
  - Post procedural complication [Unknown]
